FAERS Safety Report 4364627-8 (Version None)
Quarter: 2004Q2

REPORT INFORMATION
  Report Type: 
  Country: None (occurrence: None)
  Receive Date: 20040521
  Receipt Date: 20040503
  Transmission Date: 20050107
  Serious: Yes (Other)
  Sender: FDA-Public Use
  Company Number: US_0405102823

PATIENT
  Age: 60 Year
  Sex: Male
  Weight: 91 kg

DRUGS (1)
  1. HUMULIN 70/30 [Suspect]
     Dosage: 122 U DAY
     Dates: start: 19840101

REACTIONS (3)
  - CARDIAC DISORDER [None]
  - HYPOACUSIS [None]
  - PHARMACEUTICAL PRODUCT COMPLAINT [None]
